FAERS Safety Report 5008866-1 (Version None)
Quarter: 2006Q2

REPORT INFORMATION
  Report Type: 
  Country: None (occurrence: None)
  Receive Date: 20060518
  Receipt Date: 20060508
  Transmission Date: 20061013
  Serious: Yes (Hospitalization)
  Sender: FDA-Public Use
  Company Number: 2005-BP-00765RO

PATIENT
  Age: 77 Year
  Sex: Female

DRUGS (9)
  1. LEUCOVORIN CALCIUM [Suspect]
     Indication: RECTAL CANCER
     Dosage: 75 MG/DAY, PO
     Route: 048
     Dates: start: 20040719, end: 20040919
  2. UFT [Suspect]
     Indication: RECTAL CANCER
     Dosage: 2.25 G/DAY, PO
     Route: 048
     Dates: start: 20040719, end: 20040919
  3. BERIZYM (BERIZYM) [Concomitant]
  4. FAMOTIDINE [Concomitant]
  5. FERROMIA (FERROUS CITRATE) [Concomitant]
  6. ABILIT (SULPIRIDE) [Concomitant]
  7. AMINOFLUID (AMINOFLUID) [Concomitant]
  8. LENDORM [Concomitant]
  9. MAGNESIUM OXIDE (MAGNESIUM OXIDE) [Concomitant]

REACTIONS (2)
  - IMMUNE SYSTEM DISORDER [None]
  - INFECTIVE SPONDYLITIS [None]
